FAERS Safety Report 8831879 (Version 1)
Quarter: 2012Q4

REPORT INFORMATION
  Report Type: 
  Country: US (occurrence: US)
  Receive Date: 20121009
  Receipt Date: 20121009
  Transmission Date: 20130627
  Serious: Yes (Other)
  Sender: FDA-Public Use
  Company Number: US-ALEXION-A201201888

PATIENT

DRUGS (2)
  1. SOLIRIS 300MG [Suspect]
     Indication: PAROXYSMAL NOCTURNAL HAEMOGLOBINURIA
     Dosage: 900 mg, UNK
     Route: 042
  2. MENINGOCOCCAL VACCINES [Concomitant]
     Indication: IMMUNISATION
     Dosage: UNK
     Dates: start: 2012, end: 2012

REACTIONS (1)
  - Thrombosis [Unknown]
